FAERS Safety Report 4850924-6 (Version None)
Quarter: 2005Q4

REPORT INFORMATION
  Report Type: 
  Country: None (occurrence: None)
  Receive Date: 20051208
  Receipt Date: 20051128
  Transmission Date: 20060501
  Serious: Yes (Death, Other)
  Sender: FDA-Public Use
  Company Number: 2005140440

PATIENT
  Age: 47 Year
  Sex: Male
  Weight: 104.3273 kg

DRUGS (4)
  1. XANAX [Suspect]
     Indication: ANXIETY
     Dosage: 2 MG (1 MG, 2 IN 1 D), ORAL
     Route: 048
     Dates: start: 20050316, end: 20050319
  2. GEODON [Suspect]
     Indication: PSYCHOTIC DISORDER
     Dosage: 180 MG (60 MG, 1 IN 1 D)
     Dates: start: 20040518, end: 20050319
  3. WELLBUTRIN SR [Suspect]
     Indication: DEPRESSION
     Dosage: 400 MG (200 MG, 2 IN 1 D), ORAL
     Route: 048
     Dates: start: 19970101, end: 20050319
  4. VIAGRA [Concomitant]

REACTIONS (7)
  - BLOOD PRESSURE ABNORMAL [None]
  - COMPLETED SUICIDE [None]
  - DRUG INTERACTION [None]
  - DRUG SCREEN POSITIVE [None]
  - DYSARTHRIA [None]
  - FEELING ABNORMAL [None]
  - STRESS [None]
